FAERS Safety Report 17458794 (Version 1)
Quarter: 2020Q1

REPORT INFORMATION
  Report Type: Spontaneous
  Country: US (occurrence: US)
  Receive Date: 20200225
  Receipt Date: 20200225
  Transmission Date: 20200409
  Serious: No
  Sender: FDA-Public Use
  Company Number: US-IGSA-SR10008224

PATIENT
  Sex: Female
  Weight: 117 kg

DRUGS (18)
  1. ALBUTEROL                          /00139501/ [Concomitant]
     Active Substance: ALBUTEROL
  2. PROLASTIN-C LIQUID [Suspect]
     Active Substance: .ALPHA.1-PROTEINASE INHIBITOR HUMAN
     Indication: ALPHA-1 ANTI-TRYPSIN DEFICIENCY
     Dosage: 7020 MG, Q.WK.
     Route: 042
     Dates: start: 201809
  3. MORPHINE                           /00036302/ [Concomitant]
     Active Substance: MORPHINE
  4. PROLASTIN [Suspect]
     Active Substance: .ALPHA.1-PROTEINASE INHIBITOR HUMAN
     Indication: ALPHA-1 ANTI-TRYPSIN DEFICIENCY
     Dosage: 7020 MG, Q.WK.
     Route: 042
     Dates: start: 20111220, end: 201809
  5. GLUCOPHAGE [Concomitant]
     Active Substance: METFORMIN HYDROCHLORIDE
  6. LIDODERM [Concomitant]
     Active Substance: LIDOCAINE
  7. AMBIEN CR [Concomitant]
     Active Substance: ZOLPIDEM TARTRATE
  8. NAPROXEN                           /00256202/ [Concomitant]
     Active Substance: NAPROXEN SODIUM
  9. LEXAPRO [Concomitant]
     Active Substance: ESCITALOPRAM OXALATE
  10. COZAAR [Concomitant]
     Active Substance: LOSARTAN POTASSIUM
  11. LANTUS [Concomitant]
     Active Substance: INSULIN GLARGINE
  12. SPIRIVA [Concomitant]
     Active Substance: TIOTROPIUM BROMIDE MONOHYDRATE
  13. PROAIR HFA [Concomitant]
     Active Substance: ALBUTEROL SULFATE
  14. PROCARDIA [Concomitant]
     Active Substance: NIFEDIPINE
  15. NEXIUM [Concomitant]
     Active Substance: ESOMEPRAZOLE MAGNESIUM
  16. VITAMIN D3 [Concomitant]
     Active Substance: CHOLECALCIFEROL
  17. LASIX [Concomitant]
     Active Substance: FUROSEMIDE
  18. TRAMADOL                           /00599202/ [Concomitant]
     Active Substance: TRAMADOL

REACTIONS (1)
  - Tooth discolouration [Not Recovered/Not Resolved]
